FAERS Safety Report 9167082 (Version 1)
Quarter: 2013Q1

REPORT INFORMATION
  Report Type: Spontaneous
  Country: US (occurrence: None)
  Receive Date: 20130314
  Receipt Date: 20130314
  Transmission Date: 20140127
  Serious: Yes (Hospitalization)
  Sender: FDA-Public Use
  Company Number: None

PATIENT
  Age: 63 Year
  Sex: Male
  Weight: 133.8 kg

DRUGS (2)
  1. TRAZODONE [Suspect]
     Dates: start: 20100808, end: 20130127
  2. METHSCOPOLAMINE [Suspect]
     Dates: start: 20120801, end: 20130127

REACTIONS (1)
  - Ill-defined disorder [None]
